FAERS Safety Report 6723170-9 (Version None)
Quarter: 2010Q2

REPORT INFORMATION
  Report Type: 
  Country: None (occurrence: None)
  Receive Date: 20100513
  Receipt Date: 20100505
  Transmission Date: 20101027
  Serious: Yes (Other)
  Sender: FDA-Public Use
  Company Number: US-JNJFOC-20100501850

PATIENT
  Sex: Female

DRUGS (8)
  1. FENTANYL CITRATE [Suspect]
     Indication: PAIN
     Dosage: 75UG+50UG PATCH
     Route: 062
  2. FENTANYL CITRATE [Suspect]
     Route: 062
  3. DURAGESIC-100 [Suspect]
     Indication: PAIN
     Route: 062
  4. DURAGESIC-100 [Suspect]
     Route: 062
  5. PANTOPRAZOLE [Concomitant]
     Indication: GASTROOESOPHAGEAL REFLUX DISEASE
     Route: 048
  6. VITAMIN TAB [Concomitant]
     Indication: NUTRITIONAL SUPPORT
     Route: 048
  7. TEGRETOL [Concomitant]
     Indication: COMPLEX REGIONAL PAIN SYNDROME
     Route: 048
  8. PREMARIN [Concomitant]
     Indication: HORMONE LEVEL ABNORMAL
     Route: 048

REACTIONS (5)
  - APPLICATION SITE EROSION [None]
  - HYPERTENSION [None]
  - OSTEOGENESIS IMPERFECTA [None]
  - PAIN [None]
  - PRODUCT ADHESION ISSUE [None]
